FAERS Safety Report 6138270-4 (Version None)
Quarter: 2009Q1

REPORT INFORMATION
  Report Type: 
  Country: None (occurrence: None)
  Receive Date: 20090331
  Receipt Date: 20090326
  Transmission Date: 20090719
  Serious: Yes (Life-Threatening)
  Sender: FDA-Public Use
  Company Number: B0566939A

PATIENT
  Age: 69 Year
  Sex: Male

DRUGS (7)
  1. PAXIL [Suspect]
     Indication: DEPRESSION
     Dosage: 10MG PER DAY
     Route: 048
     Dates: start: 20090213
  2. HALCION [Concomitant]
     Route: 048
  3. ASPIRIN [Concomitant]
     Route: 048
  4. HYPEN [Concomitant]
     Route: 048
  5. OPALMON [Concomitant]
     Route: 048
  6. EURODIN [Concomitant]
     Route: 048
  7. SOLANAX [Concomitant]
     Route: 048

REACTIONS (1)
  - SUICIDAL IDEATION [None]
